FAERS Safety Report 4494284-1 (Version None)
Quarter: 2004Q4

REPORT INFORMATION
  Report Type: 
  Country: None (occurrence: None)
  Receive Date: 20041029
  Receipt Date: 20041018
  Transmission Date: 20050328
  Serious: Yes (Other)
  Sender: FDA-Public Use
  Company Number: 200410269BBE

PATIENT
  Age: 4 Year
  Sex: Male

DRUGS (3)
  1. KOATE [Suspect]
     Indication: FACTOR VIII DEFICIENCY
     Dates: start: 19850101, end: 19860101
  2. KOATE-HT [Suspect]
     Indication: FACTOR VIII DEFICIENCY
     Dosage: SEE IMAGE
     Dates: start: 19860101, end: 19900101
  3. KOATE-HT [Suspect]
     Indication: FACTOR VIII DEFICIENCY
     Dosage: SEE IMAGE
     Dates: start: 19900101, end: 19910101

REACTIONS (2)
  - HEPATITIS C [None]
  - HIV INFECTION [None]
